FAERS Safety Report 21424229 (Version 2)
Quarter: 2022Q4

REPORT INFORMATION
  Report Type: Spontaneous
  Country: US (occurrence: US)
  Receive Date: 20221007
  Receipt Date: 20221114
  Transmission Date: 20230113
  Serious: Yes (Other)
  Sender: FDA-Public Use
  Company Number: US-ORGANON-O2210USA000476

PATIENT
  Age: 26 Year
  Sex: Female
  Weight: 147.85 kg

DRUGS (1)
  1. NEXPLANON [Suspect]
     Active Substance: ETONOGESTREL
     Indication: Contraception
     Dosage: 1 IMPLANT OF 68 MILLIGRAMS (MG) IN LEFT ARM
     Route: 059
     Dates: start: 20220902, end: 20220906

REACTIONS (3)
  - Device expulsion [Recovered/Resolved]
  - Implant site infection [Unknown]
  - Wrong technique in product usage process [Unknown]

NARRATIVE: CASE EVENT DATE: 20220901
